FAERS Safety Report 8225925-0 (Version None)
Quarter: 2012Q1

REPORT INFORMATION
  Report Type: 
  Country: None (occurrence: None)
  Receive Date: 20120321
  Receipt Date: 20120312
  Transmission Date: 20120608
  Serious: Yes (Other)
  Sender: FDA-Public Use
  Company Number: JP-FRI-1000029225

PATIENT
  Age: 3 Decade
  Sex: Female

DRUGS (2)
  1. LEXAPRO [Suspect]
     Dosage: 10 MG
     Route: 048
     Dates: start: 20120216, end: 20120229
  2. LEXAPRO [Suspect]
     Dosage: 20 MG
     Route: 048
     Dates: start: 20120301, end: 20120308

REACTIONS (4)
  - FACIAL SPASM [None]
  - DYSKINESIA [None]
  - NAUSEA [None]
  - DECREASED APPETITE [None]
